FAERS Safety Report 4403716-6 (Version None)
Quarter: 2004Q3

REPORT INFORMATION
  Report Type: 
  Country: None (occurrence: None)
  Receive Date: 20040719
  Receipt Date: 20040712
  Transmission Date: 20050211
  Serious: Yes (Hospitalization)
  Sender: FDA-Public Use
  Company Number: LTI2004A00139

PATIENT
  Age: 83 Year
  Sex: Female

DRUGS (7)
  1. LANSOPRAZOLE [Suspect]
     Indication: GASTRODUODENAL ULCER
     Dosage: 30 MG (30 MG, 1 IN 1 D) ORAL
     Route: 048
     Dates: end: 20040216
  2. SIMVASTATIN [Suspect]
     Indication: HYPERCHOLESTEROLAEMIA
     Dosage: 1 DF (1 IN 1 D FORMS, TABLETS) ORAL
     Route: 048
     Dates: end: 20040216
  3. OLMIFON (ADRAFINIL) (300 MILLIGRAM, TABLETS) [Concomitant]
     Indication: FATIGUE
     Dosage: 900 MG (300 MG, 3 IN 1 D) ORAL
     Route: 048
     Dates: end: 20040216
  4. OLMIFON (ADRAFINIL) (300 MILLIGRAM, TABLETS) [Concomitant]
     Indication: MALAISE
     Dosage: 900 MG (300 MG, 3 IN 1 D) ORAL
     Route: 048
     Dates: end: 20040216
  5. PLAVIX [Concomitant]
  6. DI-ANTALVIC (APOREX) (CAPSULES) [Concomitant]
  7. ADANCOR (NICORANDIL) (TABLETS) [Concomitant]

REACTIONS (4)
  - AGITATION [None]
  - CONFUSIONAL STATE [None]
  - FALL [None]
  - HALLUCINATION, VISUAL [None]
